FAERS Safety Report 17815293 (Version 1)
Quarter: 2020Q2

REPORT INFORMATION
  Report Type: Spontaneous
  Country: GB (occurrence: GB)
  Receive Date: 20200522
  Receipt Date: 20200522
  Transmission Date: 20200714
  Serious: Yes (Death)
  Sender: FDA-Public Use
  Company Number: GB-TEVA-2020-GB-1238276

PATIENT
  Age: 9 Year
  Sex: Female
  Weight: 23 kg

DRUGS (7)
  1. IFOSFAMIDE. [Concomitant]
     Active Substance: IFOSFAMIDE
  2. VINCRISTINE SULFATE. [Concomitant]
     Active Substance: VINCRISTINE SULFATE
  3. DOXORUBICIN [Concomitant]
     Active Substance: DOXORUBICIN
  4. DEXAMETHASONE. [Concomitant]
     Active Substance: DEXAMETHASONE
  5. TOPOTECAN HYDROCHLORIDE. [Suspect]
     Active Substance: TOPOTECAN HYDROCHLORIDE
     Indication: METASTASES TO MENINGES
     Dosage: ONLY ONCE. 0.4 MG
     Route: 037
     Dates: start: 20191017, end: 20191017
  6. ATRACURIUM BESILATE [Concomitant]
     Active Substance: ATRACURIUM BESYLATE
  7. FENTANYL. [Concomitant]
     Active Substance: FENTANYL

REACTIONS (4)
  - Rash [Fatal]
  - Toxicity to various agents [Fatal]
  - Cardiac arrest [Fatal]
  - Ventricular tachycardia [Fatal]
